FAERS Safety Report 6293796-8 (Version None)
Quarter: 2009Q3

REPORT INFORMATION
  Report Type: 
  Country: None (occurrence: None)
  Receive Date: 20090731
  Receipt Date: 20090731
  Transmission Date: 20100115
  Serious: No
  Sender: FDA-Public Use
  Company Number: None

PATIENT
  Sex: Female
  Weight: 61.2356 kg

DRUGS (2)
  1. MIACALCIN [Suspect]
     Indication: OSTEOPOROSIS
     Dosage: 200 UNITS PER SPRAY, QD, NASALLY
     Route: 045
     Dates: start: 20060301
  2. MIACALCIN [Suspect]
     Indication: THORACIC VERTEBRAL FRACTURE
     Dosage: 200 UNITS PER SPRAY, QD, NASALLY
     Route: 045
     Dates: start: 20060301

REACTIONS (1)
  - NASAL DISCOMFORT [None]
